FAERS Safety Report 10654439 (Version 1)
Quarter: 2014Q4

REPORT INFORMATION
  Report Type: Spontaneous
  Country: US (occurrence: None)
  Receive Date: 20141215
  Receipt Date: 20141215
  Transmission Date: 20150529
  Serious: Yes (Life-Threatening, Hospitalization)
  Sender: FDA-Public Use
  Company Number: None

PATIENT
  Age: 3 Year
  Sex: Female
  Weight: 58.97 kg

DRUGS (1)
  1. ONFI [Suspect]
     Active Substance: CLOBAZAM
     Indication: EPILEPSY
     Dates: start: 20120820, end: 20121220

REACTIONS (3)
  - Cognitive disorder [None]
  - Suicide attempt [None]
  - Judgement impaired [None]

NARRATIVE: CASE EVENT DATE: 20121220
